FAERS Safety Report 20046310 (Version 2)
Quarter: 2022Q1

REPORT INFORMATION
  Report Type: Spontaneous
  Country: US (occurrence: US)
  Receive Date: 20211109
  Receipt Date: 20220124
  Transmission Date: 20220423
  Serious: No
  Sender: FDA-Public Use
  Company Number: US-ViiV Healthcare Limited-71001

PATIENT
  Sex: Female

DRUGS (2)
  1. SELZENTRY [Suspect]
     Active Substance: MARAVIROC
     Indication: Product used for unknown indication
     Dosage: 150 MG (1 PILL)
     Route: 048
  2. SELZENTRY [Suspect]
     Active Substance: MARAVIROC
     Dosage: 150 MG, BID  (2 PILLS)
     Route: 048
     Dates: start: 20211021

REACTIONS (6)
  - Paraesthesia oral [Not Recovered/Not Resolved]
  - Oral discomfort [Unknown]
  - Heart rate increased [Unknown]
  - Rash [Unknown]
  - Nonspecific reaction [Unknown]
  - Condition aggravated [Unknown]

NARRATIVE: CASE EVENT DATE: 20210101
